FAERS Safety Report 23344073 (Version 2)
Quarter: 2024Q1

REPORT INFORMATION
  Report Type: Spontaneous
  Country: JP (occurrence: JP)
  Receive Date: 20231227
  Receipt Date: 20240214
  Transmission Date: 20240409
  Serious: Yes (Death, Hospitalization, Disabling, Other)
  Sender: FDA-Public Use
  Company Number: JP-BAXTER-2023BAX038907

PATIENT
  Age: 55 Year
  Sex: Female

DRUGS (7)
  1. DOXIL [Suspect]
     Active Substance: DOXORUBICIN HYDROCHLORIDE
     Indication: Ovarian cancer stage IV
     Dosage: 65 MG, ONCE DAILY
     Route: 042
     Dates: start: 20230711, end: 20230905
  2. AVASTIN [Suspect]
     Active Substance: BEVACIZUMAB
     Indication: Neoplasm progression
     Dosage: UNK, A TOTAL OF 3 CYCLES
     Route: 065
     Dates: start: 20230711
  3. AVASTIN [Suspect]
     Active Substance: BEVACIZUMAB
     Indication: Cholangiocarcinoma
  4. LEVETIRACETAM [Concomitant]
     Active Substance: LEVETIRACETAM
     Indication: Epilepsy
     Dosage: 500 MG, FOUR TIMES DAILY
     Route: 048
     Dates: start: 20210601
  5. VIMPAT [Concomitant]
     Active Substance: LACOSAMIDE
     Indication: Epilepsy
     Dosage: 100 MG, THREE TIMES DAILY
     Route: 048
     Dates: start: 20210601
  6. CALONAL [Concomitant]
     Active Substance: ACETAMINOPHEN
     Indication: Analgesic therapy
     Dosage: 500 MG, FOUR TIMES DAILY
     Route: 048
     Dates: start: 20220901
  7. DAYVIGO [Concomitant]
     Active Substance: LEMBOREXANT
     Indication: Insomnia
     Dosage: 5 MG, ONCE DAILY
     Route: 048
     Dates: start: 20220329

REACTIONS (17)
  - Paraneoplastic pemphigus [Fatal]
  - Blindness [Fatal]
  - Oral mucosa erosion [Fatal]
  - Mouth haemorrhage [Fatal]
  - Rash vesicular [Fatal]
  - Rash [Fatal]
  - Nasopharyngitis [Unknown]
  - General physical health deterioration [Unknown]
  - Retinal detachment [Unknown]
  - Glossodynia [Unknown]
  - Tongue ulceration [Unknown]
  - Lip ulceration [Unknown]
  - Oral herpes [Unknown]
  - Eye pruritus [Unknown]
  - Ocular hyperaemia [Unknown]
  - Upper respiratory tract inflammation [Unknown]
  - Sinusitis [Unknown]

NARRATIVE: CASE EVENT DATE: 20231019
